FAERS Safety Report 11278358 (Version 2)
Quarter: 2015Q4

REPORT INFORMATION
  Report Type: Spontaneous
  Country: JP (occurrence: JP)
  Receive Date: 20150717
  Receipt Date: 20151020
  Transmission Date: 20160304
  Serious: Yes (Hospitalization, Other)
  Sender: FDA-Public Use
  Company Number: PHJP2015JP011855

PATIENT
  Age: 55 Year
  Sex: Female
  Weight: 39 kg

DRUGS (12)
  1. ARTANE [Concomitant]
     Active Substance: TRIHEXYPHENIDYL HYDROCHLORIDE
     Indication: PARKINSON^S DISEASE
     Dosage: 5 MG, BID
     Route: 048
     Dates: end: 20150317
  2. COMTAN [Suspect]
     Active Substance: ENTACAPONE
     Indication: PARKINSON^S DISEASE
     Dosage: 500 MG, QD
     Route: 048
  3. NOURIAST [Suspect]
     Active Substance: ISTRADEFYLLINE
     Indication: MOTOR DYSFUNCTION
     Dosage: 40 MG, QD
     Route: 048
     Dates: start: 20140616, end: 20150317
  4. CABASER [Suspect]
     Active Substance: CABERGOLINE
     Indication: PARKINSON^S DISEASE
     Dosage: 1 MG, QD
     Route: 048
     Dates: end: 20140915
  5. PERMAX [Concomitant]
     Active Substance: PERGOLIDE
     Indication: PARKINSON^S DISEASE
     Dosage: UNK, TID
     Route: 048
     Dates: end: 20150317
  6. CABASER [Suspect]
     Active Substance: CABERGOLINE
     Dosage: 0.5 MG, QD
     Route: 048
     Dates: start: 20140916, end: 20141010
  7. COMTAN [Suspect]
     Active Substance: ENTACAPONE
     Dosage: 250 MG, QD
     Route: 048
     Dates: start: 20140715, end: 20150317
  8. NOURIAST [Suspect]
     Active Substance: ISTRADEFYLLINE
     Indication: PARKINSON^S DISEASE
     Dosage: 20 MG, QD
     Route: 048
     Dates: start: 20140520
  9. CABASER [Suspect]
     Active Substance: CABERGOLINE
     Dosage: 1 MG, QD
     Route: 048
     Dates: end: 20141014
  10. MADOPAR [Concomitant]
     Active Substance: BENSERAZIDE HYDROCHLORIDE\LEVODOPA
     Indication: PARKINSON^S DISEASE
     Dosage: 5 DF, QD (50 MG)
     Route: 048
  11. EXCEGRAN [Concomitant]
     Active Substance: ZONISAMIDE
     Indication: PRODUCT USED FOR UNKNOWN INDICATION
     Dosage: 50 MG, QD
     Route: 048
     Dates: end: 20150317
  12. MADOPAR [Concomitant]
     Active Substance: BENSERAZIDE HYDROCHLORIDE\LEVODOPA
     Dosage: 5 DF, QD (100 MG)
     Route: 048
     Dates: end: 20150317

REACTIONS (5)
  - Fall [Unknown]
  - Pubis fracture [Unknown]
  - Parkinson^s disease [Unknown]
  - Motor dysfunction [Unknown]
  - Dyskinesia [Recovered/Resolved]

NARRATIVE: CASE EVENT DATE: 20140715
